FAERS Safety Report 5062890-1 (Version None)
Quarter: 2006Q3

REPORT INFORMATION
  Report Type: 
  Country: None (occurrence: None)
  Receive Date: 20060724
  Receipt Date: 20060713
  Transmission Date: 20061208
  Serious: Yes (Other)
  Sender: FDA-Public Use
  Company Number: 2006076401

PATIENT
  Age: 65 Year
  Sex: Female
  Weight: 77.1115 kg

DRUGS (1)
  1. LIPITOR [Suspect]
     Indication: HYPERCHOLESTEROLAEMIA
     Dosage: 10 MG (10 MG, 1 IN 1 D), ORAL
     Route: 048
     Dates: start: 20060510, end: 20060620

REACTIONS (4)
  - FAT TISSUE INCREASED [None]
  - HYPOTONIA [None]
  - MUSCLE DISORDER [None]
  - WEIGHT INCREASED [None]
